FAERS Safety Report 16363269 (Version 1)
Quarter: 2019Q2

REPORT INFORMATION
  Report Type: Spontaneous
  Country: US (occurrence: US)
  Receive Date: 20190422
  Receipt Date: 20190422
  Transmission Date: 20190711
  Serious: No
  Sender: FDA-Public Use
  Company Number: None

PATIENT
  Age: 56 Year
  Sex: Female
  Weight: 52.16 kg

DRUGS (1)
  1. TYMLOS [Suspect]
     Active Substance: ABALOPARATIDE
     Indication: OSTEOPOROSIS
     Dosage: STRENGTH 3120 MCG/1.58ML INJ
     Route: 058
     Dates: start: 201901

REACTIONS (3)
  - Headache [None]
  - Palpitations [None]
  - Staphylococcal infection [None]
